FAERS Safety Report 11826712 (Version 1)
Quarter: 2015Q4

REPORT INFORMATION
  Report Type: Spontaneous
  Country: PH (occurrence: PH)
  Receive Date: 20151211
  Receipt Date: 20151211
  Transmission Date: 20160305
  Serious: Yes (Death)
  Sender: FDA-Public Use
  Company Number: PH-009507513-1512PHL005643

PATIENT
  Sex: Female

DRUGS (4)
  1. PRITOR [Concomitant]
     Active Substance: TELMISARTAN
     Dosage: UNK
  2. TWYNSTA [Concomitant]
     Active Substance: AMLODIPINE BESYLATE\TELMISARTAN
     Dosage: UNK
  3. JANUVIA [Suspect]
     Active Substance: SITAGLIPTIN PHOSPHATE
     Indication: DIABETES MELLITUS
     Dosage: 50 MG (ONE TABLET), ONCE A DAY
     Route: 048
     Dates: start: 2013
  4. CARDIOSEL [Concomitant]
     Dosage: UNK

REACTIONS (1)
  - Diabetic complication [Fatal]
